FAERS Safety Report 6203848-6 (Version None)
Quarter: 2009Q2

REPORT INFORMATION
  Report Type: 
  Country: None (occurrence: None)
  Receive Date: 20090527
  Receipt Date: 20090519
  Transmission Date: 20091009
  Serious: Yes (Other)
  Sender: FDA-Public Use
  Company Number: JP-PFIZER INC-2009217055

PATIENT
  Age: 75 Year

DRUGS (2)
  1. LIPITOR [Suspect]
     Dosage: UNK
     Route: 048
  2. GASTER [Suspect]
     Dosage: UNK
     Route: 065

REACTIONS (1)
  - GYNAECOMASTIA [None]
